FAERS Safety Report 7684190-3 (Version None)
Quarter: 2011Q3

REPORT INFORMATION
  Report Type: 
  Country: None (occurrence: None)
  Receive Date: 20110815
  Receipt Date: 20110803
  Transmission Date: 20111222
  Serious: Yes (Other)
  Sender: FDA-Public Use
  Company Number: US-BAYER-201027479NA

PATIENT
  Sex: Female
  Weight: 86.1 kg

DRUGS (17)
  1. MAGNEVIST [Suspect]
     Indication: ANGIOGRAM
     Dosage: 70 ML, UNK
     Route: 042
     Dates: start: 20070705, end: 20070705
  2. LASIX [Concomitant]
     Dosage: 40 MG 3 TABS Q AM AND 2 TABS Q PM
     Route: 048
  3. METOPROLOL TARTRATE [Concomitant]
     Dosage: 12.5 MG, BID
     Route: 048
  4. PLAVIX [Concomitant]
     Dosage: 75 MG, QD
     Route: 048
  5. SEVELAMER [Concomitant]
     Dosage: 800 MG, AC
  6. MAGNEVIST [Suspect]
     Indication: NUCLEAR MAGNETIC RESONANCE IMAGING
     Dosage: 40 ML, UNK
     Route: 042
     Dates: start: 20070703, end: 20070703
  7. SODIUM BICARBONATE [Concomitant]
     Dosage: 650 MG 2 TABS TID WITH MEALS
     Route: 048
  8. COUMADIN [Concomitant]
     Route: 048
  9. ANGIOTENSIN II ANTAGONISTS [Concomitant]
  10. ACE INHIBITOR NOS [Concomitant]
  11. FOSAMAX [Concomitant]
     Dosage: 70 MG, OW
     Route: 048
  12. LOPRESSOR [Concomitant]
     Dosage: 50 MG, QID
     Route: 048
  13. EPOGEN [Concomitant]
     Dosage: ADMINISTERED WITH DIALYSIS
     Route: 058
  14. NORVASC [Concomitant]
     Dosage: 5 MG, QD
     Route: 048
  15. GADOLINIUM IN UNSPECIFIED DRUG [Suspect]
  16. INSULIN [Concomitant]
     Route: 058
  17. PRAVACHOL [Concomitant]
     Dosage: 40 MG, QD
     Route: 048

REACTIONS (18)
  - MOBILITY DECREASED [None]
  - PARAESTHESIA [None]
  - GENERAL PHYSICAL HEALTH DETERIORATION [None]
  - SKIN EXFOLIATION [None]
  - ANHEDONIA [None]
  - HYPOAESTHESIA [None]
  - SKIN LESION [None]
  - FIBROSIS [None]
  - DEFORMITY [None]
  - SKIN INDURATION [None]
  - OEDEMA PERIPHERAL [None]
  - ANXIETY [None]
  - PAIN [None]
  - QUALITY OF LIFE DECREASED [None]
  - SKIN HYPERPIGMENTATION [None]
  - NEPHROGENIC SYSTEMIC FIBROSIS [None]
  - EMOTIONAL DISTRESS [None]
  - SKIN HYPERTROPHY [None]
